FAERS Safety Report 13588275 (Version 2)
Quarter: 2017Q4

REPORT INFORMATION
  Report Type: Report from Study
  Country: None (occurrence: DE)
  Receive Date: 20170528
  Receipt Date: 20171114
  Transmission Date: 20180320
  Serious: Yes (Hospitalization)
  Sender: FDA-Public Use
  Company Number: DE-ABBVIE-17K-062-1941756-00

PATIENT
  Age: 65 Year
  Sex: Female
  Weight: 69 kg

DRUGS (1)
  1. HUMIRA [Suspect]
     Active Substance: ADALIMUMAB
     Indication: PSORIASIS
     Route: 058
     Dates: start: 20170208

REACTIONS (4)
  - Skin disorder [Unknown]
  - Upper respiratory tract infection [Unknown]
  - Psoriasis [Recovered/Resolved]
  - Psoriasis [Unknown]

NARRATIVE: CASE EVENT DATE: 2017
